FAERS Safety Report 9852890 (Version 3)
Quarter: 2014Q1

REPORT INFORMATION
  Report Type: Spontaneous
  Country: JP (occurrence: JP)
  Receive Date: 20140129
  Receipt Date: 20140314
  Transmission Date: 20141002
  Serious: Yes (Other)
  Sender: FDA-Public Use
  Company Number: JP-PFIZER INC-2014024858

PATIENT
  Age: 74 Year
  Sex: Male

DRUGS (1)
  1. INLYTA [Suspect]
     Indication: RENAL CELL CARCINOMA
     Dosage: 10 MG, DAILY
     Route: 048
     Dates: start: 201304

REACTIONS (1)
  - Leukoencephalopathy [Not Recovered/Not Resolved]
